FAERS Safety Report 5471322-0 (Version None)
Quarter: 2007Q3

REPORT INFORMATION
  Report Type: 
  Country: None (occurrence: None)
  Receive Date: 20070928
  Receipt Date: 20060803
  Transmission Date: 20080115
  Serious: No
  Sender: FDA-Public Use
  Company Number: US-BRISTOL-MYERS SQUIBB COMPANY-13464797

PATIENT
  Age: 62 Year
  Sex: Male
  Weight: 95 kg

DRUGS (4)
  1. PERFLUTREN [Suspect]
     Route: 042
  2. PROPRANOLOL HCL [Concomitant]
  3. DOBUTAMINE HCL [Concomitant]
  4. SODIUM CHLORIDE [Concomitant]

REACTIONS (2)
  - BACK PAIN [None]
  - NECK PAIN [None]
